FAERS Safety Report 6311638-9 (Version None)
Quarter: 2009Q3

REPORT INFORMATION
  Report Type: 
  Country: None (occurrence: None)
  Receive Date: 20090817
  Receipt Date: 20090806
  Transmission Date: 20100115
  Serious: Yes (Other)
  Sender: FDA-Public Use
  Company Number: B0587796B

PATIENT
  Sex: Male

DRUGS (6)
  1. LAMOTRIGINE [Suspect]
     Indication: SIMPLE PARTIAL SEIZURES
  2. METHOTREXATE [Concomitant]
  3. FOLIC ACID [Concomitant]
  4. TOPIRAMATE [Concomitant]
  5. PREDNISOLONE [Concomitant]
  6. CALCICHEW [Concomitant]

REACTIONS (5)
  - ASTHMA [None]
  - COMMUNICATION DISORDER [None]
  - DRUG EXPOSURE DURING PREGNANCY [None]
  - MEMORY IMPAIRMENT [None]
  - SPEECH DISORDER [None]
